FAERS Safety Report 22068267 (Version 2)
Quarter: 2023Q1

REPORT INFORMATION
  Report Type: Spontaneous
  Country: CN (occurrence: CN)
  Receive Date: 20230307
  Receipt Date: 20230317
  Transmission Date: 20230418
  Serious: Yes (Other)
  Sender: FDA-Public Use
  Company Number: CN-002147023-NVSC2023CN049794

PATIENT
  Sex: Male

DRUGS (2)
  1. DIOVAN [Suspect]
     Active Substance: VALSARTAN
     Indication: Essential hypertension
     Dosage: 80 MG, QD (DAILY) (FOR 10 YEARS)
     Route: 048
  2. VALSARTAN [Suspect]
     Active Substance: VALSARTAN
     Indication: Essential hypertension
     Dosage: (IN FEB UNKNOWN YEAR)
     Route: 065

REACTIONS (4)
  - Blood pressure diastolic increased [Recovering/Resolving]
  - Discomfort [Unknown]
  - Headache [Recovered/Resolved]
  - Drug ineffective [Unknown]
